FAERS Safety Report 20746538 (Version 1)
Quarter: 2022Q2

REPORT INFORMATION
  Report Type: Spontaneous
  Country: US (occurrence: US)
  Receive Date: 20220425
  Receipt Date: 20220425
  Transmission Date: 20220721
  Serious: No
  Sender: FDA-Public Use
  Company Number: US-PFIZER INC-202200611533

PATIENT
  Age: 68 Year
  Sex: Male
  Weight: 132.9 kg

DRUGS (11)
  1. PAXLOVID [Suspect]
     Active Substance: NIRMATRELVIR\RITONAVIR
     Indication: COVID-19 treatment
     Dosage: [PF-07321332 150 MG]/[RITONAVIR 100 MG]; 2X/DAY
     Dates: start: 20220418
  2. HUMALOG [Concomitant]
     Active Substance: INSULIN LISPRO
     Indication: Diabetes mellitus
     Dosage: 24 IU, 2X/DAY (TWICE A DAY 24 UNITS IN THE MORNING AND TAKE 24 UNITS IN THE EVENING)
  3. BASAGLAR [Concomitant]
     Active Substance: INSULIN GLARGINE
     Dosage: 110 IU, DAILY (TAKES IT TWICE A DAY, 50 UNITS IN THE MORNING AND 60 UNITS IN THE EVENING)
  4. OZEMPIC [Concomitant]
     Active Substance: SEMAGLUTIDE
     Indication: Diabetes mellitus
     Dosage: 0.5 MG, WEEKLY
     Dates: start: 202201
  5. FISH OIL [Concomitant]
     Active Substance: FISH OIL
     Dosage: 2 DF, DAILY (TAKE 2 A DAY)
  6. VITAMIN C [Concomitant]
     Active Substance: ASCORBIC ACID
     Dosage: 1000 MG, 1X/DAY (TAKE 1 A DAY 1000MG)
  7. GLUCOSAMINE [Concomitant]
     Active Substance: GLUCOSAMINE
     Dosage: 2 DF, DAILY (2 TABLETS A DAY)
  8. VITAMIN D3 [Concomitant]
     Active Substance: CHOLECALCIFEROL
     Dosage: 50 UG, 2X/DAY (50MCG-TAKE 2 A DAY)
  9. VITAMIN B12 [Concomitant]
     Active Substance: CYANOCOBALAMIN
     Dosage: 1 DF (5000MCG TAKE ONE TABLET)
  10. CINNAMON [Concomitant]
     Active Substance: CINNAMON
     Dosage: 1000 MG, 2X/DAY (ONE IN THE MORNING AND ONE IN THE EVENING)
  11. HERBALS\TURMERIC [Concomitant]
     Active Substance: HERBALS\TURMERIC
     Indication: Arthritis
     Dosage: 2 DF, DAILY (1500MG PER TABLET. TAKES 2 TABLETS A DAY)

REACTIONS (1)
  - Blood pressure abnormal [Unknown]
